FAERS Safety Report 4796195-0 (Version None)
Quarter: 2005Q4

REPORT INFORMATION
  Report Type: 
  Country: None (occurrence: None)
  Receive Date: 20051007
  Receipt Date: 20050928
  Transmission Date: 20060501
  Serious: Yes (Other)
  Sender: FDA-Public Use
  Company Number: 163-20785-05090383

PATIENT
  Age: 60 Year
  Sex: Female

DRUGS (2)
  1. THALOMID [Suspect]
     Indication: MULTIPLE MYELOMA
     Dosage: 50MG THREE TIMES A WEEK, ORAL
     Route: 048
     Dates: start: 20040628
  2. DEXAMETHASONE [Concomitant]

REACTIONS (2)
  - EYE DISORDER [None]
  - NERVE INJURY [None]
